FAERS Safety Report 21586626 (Version 1)
Quarter: 2022Q4

REPORT INFORMATION
  Report Type: Other
  Country: VE (occurrence: VE)
  Receive Date: 20221113
  Receipt Date: 20221113
  Transmission Date: 20230112
  Serious: Yes (Hospitalization)
  Sender: FDA-Public Use
  Company Number: VE-DEXPHARM-20222270

PATIENT
  Age: 48 Year
  Sex: Male

DRUGS (1)
  1. DEXAMETHASONE [Suspect]
     Active Substance: DEXAMETHASONE
     Indication: COVID-19

REACTIONS (4)
  - Anxiety [Recovered/Resolved]
  - Neuropsychiatric symptoms [Recovered/Resolved]
  - Mania [Recovered/Resolved]
  - Off label use [Recovered/Resolved]
